FAERS Safety Report 11792604 (Version 1)
Quarter: 2015Q4

REPORT INFORMATION
  Report Type: Spontaneous
  Country: US (occurrence: US)
  Receive Date: 20151202
  Receipt Date: 20151202
  Transmission Date: 20160305
  Serious: Yes (Hospitalization, Other)
  Sender: FDA-Public Use
  Company Number: US-ASTRAZENECA-2015SF19523

PATIENT
  Age: 55 Year
  Sex: Female
  Weight: 54.4 kg

DRUGS (3)
  1. PRILOSEC OTC [Suspect]
     Active Substance: OMEPRAZOLE MAGNESIUM
     Indication: GASTROOESOPHAGEAL REFLUX DISEASE
     Route: 048
     Dates: start: 201509
  2. PRILOSEC [Suspect]
     Active Substance: OMEPRAZOLE MAGNESIUM
     Indication: GASTROOESOPHAGEAL REFLUX DISEASE
     Route: 048
     Dates: end: 201509
  3. NEXIUM [Suspect]
     Active Substance: ESOMEPRAZOLE MAGNESIUM
     Indication: GASTROOESOPHAGEAL REFLUX DISEASE
     Route: 048

REACTIONS (10)
  - Frustration [Unknown]
  - Lung infection [Unknown]
  - Dyspepsia [Unknown]
  - Malabsorption [Unknown]
  - Weight decreased [Unknown]
  - Abdominal infection [Unknown]
  - Drug effect decreased [Unknown]
  - Fatigue [Unknown]
  - Drug ineffective [Unknown]
  - Intestinal gangrene [Unknown]

NARRATIVE: CASE EVENT DATE: 2013
